FAERS Safety Report 22056536 (Version 1)
Quarter: 2023Q1

REPORT INFORMATION
  Report Type: Spontaneous
  Country: US (occurrence: US)
  Receive Date: 20230302
  Receipt Date: 20230302
  Transmission Date: 20230417
  Serious: No
  Sender: FDA-Public Use
  Company Number: US-NOVOPROD-884768

PATIENT
  Sex: Female

DRUGS (1)
  1. VICTOZA [Suspect]
     Active Substance: LIRAGLUTIDE
     Indication: Type 2 diabetes mellitus
     Dosage: 1.2 MG
     Route: 065

REACTIONS (5)
  - Adverse event [Unknown]
  - Device breakage [Unknown]
  - Device leakage [Unknown]
  - Product physical issue [Unknown]
  - Incorrect dose administered by device [Unknown]
